FAERS Safety Report 9182461 (Version 1)
Quarter: 2012Q4

REPORT INFORMATION
  Report Type: 
  Country: US (occurrence: US)
  Receive Date: 20121030
  Receipt Date: 20121030
  Transmission Date: 20130627
  Serious: No
  Sender: FDA-Public Use
  Company Number: US-GLAXOSMITHKLINE-A0983630A

PATIENT
  Age: 47 Year
  Sex: Female

DRUGS (2)
  1. IMITREX [Suspect]
     Indication: MIGRAINE
     Route: 045
  2. IMITREX [Suspect]
     Indication: MIGRAINE
     Route: 048

REACTIONS (2)
  - Vomiting [Unknown]
  - Drug ineffective [Unknown]
